FAERS Safety Report 8022001-7 (Version None)
Quarter: 2012Q1

REPORT INFORMATION
  Report Type: 
  Country: None (occurrence: None)
  Receive Date: 20120104
  Receipt Date: 20111223
  Transmission Date: 20120608
  Serious: Yes (Hospitalization)
  Sender: FDA-Public Use
  Company Number: US-ASTRAZENECA-2011SE04121

PATIENT
  Age: 43 Year
  Sex: Male
  Weight: 113.4 kg

DRUGS (20)
  1. ESOMEPRAZOLE SODIUM [Concomitant]
  2. CARVEDILOL [Concomitant]
  3. HYDROCODONE [Concomitant]
  4. NABUMETONE [Concomitant]
  5. MELOXICAM [Concomitant]
  6. SEROQUEL [Suspect]
     Route: 048
  7. VENLAFAXINE [Concomitant]
  8. SEROQUEL [Suspect]
     Indication: DEPRESSION
     Route: 048
  9. SEROQUEL [Suspect]
     Indication: SLEEP DISORDER
     Route: 048
  10. LISINOPRIL [Concomitant]
  11. SIMVASTATIN [Concomitant]
  12. SEROQUEL [Suspect]
     Indication: BIPOLAR DISORDER
     Route: 048
  13. SEROQUEL [Suspect]
     Dosage: TAKING HALF HIS DOSE
     Route: 048
  14. SEROQUEL [Suspect]
     Dosage: TAKING HALF HIS DOSE
     Route: 048
  15. SEROQUEL [Suspect]
     Route: 048
  16. SEROQUEL [Suspect]
     Route: 048
  17. METHOCARBEMOL [Concomitant]
  18. OXCARBAZEPINE [Concomitant]
  19. SEROQUEL [Suspect]
     Dosage: TAKING HALF HIS DOSE
     Route: 048
  20. HYDRO OXYZINE PAM [Concomitant]

REACTIONS (14)
  - CARDIAC DISORDER [None]
  - SLUGGISHNESS [None]
  - CHEST PAIN [None]
  - LIGAMENT SPRAIN [None]
  - WEIGHT DECREASED [None]
  - INCORRECT DOSE ADMINISTERED [None]
  - MEMORY IMPAIRMENT [None]
  - INSOMNIA [None]
  - UPPER RESPIRATORY TRACT INFECTION [None]
  - ASTHENIA [None]
  - ABDOMINAL PAIN UPPER [None]
  - DRUG DOSE OMISSION [None]
  - MALAISE [None]
  - NAUSEA [None]
